FAERS Safety Report 8458732-4 (Version None)
Quarter: 2012Q2

REPORT INFORMATION
  Report Type: 
  Country: None (occurrence: None)
  Receive Date: 20120618
  Receipt Date: 20120531
  Transmission Date: 20120825
  Serious: Yes (Death, Other)
  Sender: FDA-Public Use
  Company Number: FK201201525

PATIENT
  Age: 32 Year
  Sex: Female

DRUGS (1)
  1. HEPARIN [Suspect]
     Indication: THROMBOSIS
     Dosage: , INTRAVENOUS (NOT OTHERWISE SPECIFIED)
     Route: 042

REACTIONS (7)
  - CENTRAL NERVOUS SYSTEM LESION [None]
  - INTRACRANIAL VENOUS SINUS THROMBOSIS [None]
  - HEPARIN-INDUCED THROMBOCYTOPENIA [None]
  - CEREBRAL VENOUS THROMBOSIS [None]
  - BRAIN HERNIATION [None]
  - HYDROCEPHALUS [None]
  - SUBDURAL HAEMATOMA [None]
